FAERS Safety Report 4968820-2 (Version None)
Quarter: 2006Q2

REPORT INFORMATION
  Report Type: 
  Country: None (occurrence: None)
  Receive Date: 20060411
  Receipt Date: 20060407
  Transmission Date: 20061013
  Serious: Yes (Hospitalization)
  Sender: FDA-Public Use
  Company Number: FR-GLAXOSMITHKLINE-B0419577A

PATIENT
  Age: 68 Year
  Sex: Female

DRUGS (7)
  1. CLAMOXYL [Suspect]
     Dosage: 1G FOUR TIMES PER DAY
     Route: 048
     Dates: start: 20050919, end: 20050921
  2. BACTRIM [Suspect]
     Route: 048
     Dates: start: 20050921, end: 20050924
  3. COAPROVEL [Concomitant]
     Route: 048
  4. SERC [Concomitant]
     Route: 048
  5. FLECAINIDE ACETATE [Concomitant]
     Route: 065
  6. LIPANTHYL [Concomitant]
     Route: 065
  7. KARDEGIC [Concomitant]
     Route: 065

REACTIONS (2)
  - DERMATITIS EXFOLIATIVE [None]
  - PYREXIA [None]
